FAERS Safety Report 7299120-6 (Version None)
Quarter: 2011Q1

REPORT INFORMATION
  Report Type: 
  Country: None (occurrence: None)
  Receive Date: 20110216
  Receipt Date: 20110216
  Transmission Date: 20110831
  Serious: Yes (Other)
  Sender: FDA-Public Use
  Company Number: None

PATIENT
  Age: 64 Year
  Sex: Male
  Weight: 122.4712 kg

DRUGS (1)
  1. TRIAD ALCOHOL WIPES N/A TRIAD [Suspect]
     Indication: INJECTION
     Dosage: PAD DAILY TOP TWICE DAILY
     Route: 061
     Dates: start: 20080101, end: 20110215

REACTIONS (1)
  - SKIN INFECTION [None]
